FAERS Safety Report 17350203 (Version 1)
Quarter: 2020Q1

REPORT INFORMATION
  Report Type: Spontaneous
  Country: GB (occurrence: GB)
  Receive Date: 20200130
  Receipt Date: 20200130
  Transmission Date: 20200409
  Serious: Yes (Other)
  Sender: FDA-Public Use
  Company Number: GB-TEVA-2020-GB-1177194

PATIENT
  Age: 67 Year
  Sex: Male
  Weight: 98 kg

DRUGS (2)
  1. PAMSVAX XL [Suspect]
     Active Substance: TAMSULOSIN HYDROCHLORIDE
     Indication: PROSTATOMEGALY
     Dosage: 1 DOSAGE FORMS
     Route: 048
     Dates: start: 201808, end: 20200111
  2. WARFARIN [Concomitant]
     Active Substance: WARFARIN

REACTIONS (2)
  - Dyspnoea [Recovered/Resolved]
  - Blood pressure increased [Recovered/Resolved]

NARRATIVE: CASE EVENT DATE: 201903
